FAERS Safety Report 20922418 (Version 1)
Quarter: 2022Q2

REPORT INFORMATION
  Report Type: Spontaneous
  Country: US (occurrence: US)
  Receive Date: 20220607
  Receipt Date: 20220607
  Transmission Date: 20220720
  Serious: No
  Sender: FDA-Public Use
  Company Number: US-ELI_LILLY_AND_COMPANY-US202205003938

PATIENT
  Sex: Female

DRUGS (1)
  1. TALTZ [Suspect]
     Active Substance: IXEKIZUMAB
     Indication: Psoriasis
     Dosage: UNK UNK, OTHER (LOADING DOSE)
     Route: 065
     Dates: start: 20220329

REACTIONS (5)
  - Acne [Unknown]
  - Nasal congestion [Unknown]
  - Psoriasis [Unknown]
  - Pain in extremity [Unknown]
  - Arthralgia [Unknown]
